FAERS Safety Report 20941960 (Version 1)
Quarter: 2022Q2

REPORT INFORMATION
  Report Type: Other
  Country: RO (occurrence: RO)
  Receive Date: 20220610
  Receipt Date: 20220610
  Transmission Date: 20220721
  Serious: Yes (Other)
  Sender: FDA-Public Use
  Company Number: RO-CELLTRION INC.-2022RO008573

PATIENT

DRUGS (2)
  1. INFLIXIMAB [Suspect]
     Active Substance: INFLIXIMAB
     Indication: Colitis ulcerative
     Dosage: 300 MG, 0, 2, 6; DOSE FORM: POWDER FOR INJECTION
     Route: 042
     Dates: start: 202104, end: 202109
  2. ADALIMUMAB [Suspect]
     Active Substance: ADALIMUMAB
     Indication: Colitis
     Dosage: 160/80 MG
     Route: 058

REACTIONS (5)
  - Weight increased [Unknown]
  - Colitis [Recovered/Resolved]
  - Dehydration [Unknown]
  - Colitis ulcerative [Unknown]
  - Drug ineffective for unapproved indication [Recovered/Resolved]

NARRATIVE: CASE EVENT DATE: 20210301
